FAERS Safety Report 7134796-5 (Version None)
Quarter: 2010Q4

REPORT INFORMATION
  Report Type: 
  Country: None (occurrence: None)
  Receive Date: 20101203
  Receipt Date: 20050610
  Transmission Date: 20110411
  Serious: Yes (Other)
  Sender: FDA-Public Use
  Company Number: NL-ROCHE-745483

PATIENT
  Age: 30 Year
  Sex: Female

DRUGS (2)
  1. XELODA [Suspect]
     Indication: ILL-DEFINED DISORDER
     Route: 048
     Dates: start: 20050601
  2. OXALIPLATIN [Suspect]
     Indication: ILL-DEFINED DISORDER
     Route: 042

REACTIONS (1)
  - DISEASE PROGRESSION [None]
